FAERS Safety Report 9824188 (Version 1)
Quarter: 2014Q1

REPORT INFORMATION
  Report Type: Spontaneous
  Country: IT (occurrence: IT)
  Receive Date: 20140116
  Receipt Date: 20140116
  Transmission Date: 20141002
  Serious: Yes (Hospitalization)
  Sender: FDA-Public Use
  Company Number: IT-GLAXOSMITHKLINE-B0960826A

PATIENT
  Age: 68 Year
  Sex: Male

DRUGS (16)
  1. ALKERAN [Suspect]
     Indication: PLASMA CELL MYELOMA
     Dosage: 12MG CYCLIC
     Route: 048
     Dates: start: 20130328
  2. VELCADE [Suspect]
     Indication: PLASMA CELL MYELOMA
     Dosage: 1.7MG CYCLIC
     Route: 042
     Dates: start: 20130328
  3. RAMIPRIL [Concomitant]
     Dates: start: 20120101, end: 20130401
  4. DELTACORTENE [Concomitant]
     Dates: start: 20130328, end: 20130331
  5. LYRICA [Concomitant]
     Route: 048
     Dates: start: 20130101, end: 20130401
  6. LODOZ [Concomitant]
     Dates: start: 20120101, end: 20130401
  7. CARDIOASPIRIN [Concomitant]
     Dates: start: 20120101, end: 20130401
  8. PROVISACOR [Concomitant]
     Dates: start: 20120101, end: 20130401
  9. ZOMETA [Concomitant]
     Dates: start: 20130321, end: 20130321
  10. TOPSYNE [Concomitant]
     Dates: start: 20130301, end: 20130401
  11. KCL RETARD [Concomitant]
     Dosage: 1200MG PER DAY
     Dates: start: 20120101, end: 20130401
  12. MAG 2 [Concomitant]
     Dosage: 2.25MG THREE TIMES PER DAY
     Dates: start: 20120101, end: 20130401
  13. PANTOPRAZOLE [Concomitant]
     Dates: start: 20120101, end: 20130401
  14. FLUCONAZOLE [Concomitant]
     Dates: start: 20120101, end: 20130401
  15. ACICLOVIR [Concomitant]
     Dates: start: 20120101, end: 20130401
  16. AMLODIPINE [Concomitant]
     Dates: start: 20120101, end: 20130401

REACTIONS (1)
  - Transient ischaemic attack [Recovering/Resolving]
